FAERS Safety Report 17515714 (Version 1)
Quarter: 2020Q1

REPORT INFORMATION
  Report Type: Spontaneous
  Country: US (occurrence: US)
  Receive Date: 20200309
  Receipt Date: 20200309
  Transmission Date: 20200409
  Serious: No
  Sender: FDA-Public Use
  Company Number: US-JNJFOC-20200302083

PATIENT
  Age: 79 Year
  Sex: Female
  Weight: 72.64 kg

DRUGS (3)
  1. XARELTO [Suspect]
     Active Substance: RIVAROXABAN
     Dosage: EVENING WITH FOOD
     Route: 048
     Dates: end: 20200223
  2. XARELTO [Suspect]
     Active Substance: RIVAROXABAN
     Dosage: EVENING WITH FOOD
     Route: 048
     Dates: start: 20200224
  3. XARELTO [Suspect]
     Active Substance: RIVAROXABAN
     Indication: THROMBOSIS
     Route: 048
     Dates: start: 20200125

REACTIONS (1)
  - Haematuria [Not Recovered/Not Resolved]

NARRATIVE: CASE EVENT DATE: 20200223
